FAERS Safety Report 9308080 (Version 1)
Quarter: 2013Q2

REPORT INFORMATION
  Report Type: Spontaneous
  Country: AU (occurrence: AU)
  Receive Date: 20130524
  Receipt Date: 20130524
  Transmission Date: 20140414
  Serious: Yes (Death, Hospitalization)
  Sender: FDA-Public Use
  Company Number: AU-ASTELLAS-2013US005498

PATIENT
  Sex: Male

DRUGS (2)
  1. TARCEVA [Suspect]
     Indication: PRODUCT USED FOR UNKNOWN INDICATION
     Dosage: 150 MG, UID/QD
     Route: 065
  2. TARCEVA [Suspect]
     Dosage: LOWER DOSE
     Route: 065

REACTIONS (2)
  - Lower respiratory tract infection [Fatal]
  - Rash [Unknown]
